FAERS Safety Report 6258043-1 (Version None)
Quarter: 2009Q3

REPORT INFORMATION
  Report Type: 
  Country: None (occurrence: None)
  Receive Date: 20090702
  Receipt Date: 20090619
  Transmission Date: 20100115
  Serious: Yes (Other)
  Sender: FDA-Public Use
  Company Number: 1000007097

PATIENT
  Sex: Female

DRUGS (7)
  1. LEXAPRO [Suspect]
     Indication: DEPRESSION
     Dosage: 0.2 ML (0.2 ML, 1 IN 1 D), ORAL
     Route: 048
     Dates: start: 20090508, end: 20090511
  2. OXAZEPAM [Concomitant]
  3. TEMAZEPAM [Concomitant]
  4. ACETAMINOPHEN W/ CODEINE [Concomitant]
  5. ONDANSETRON [Concomitant]
  6. ESOMEPRAZOLE MAGNESIUM [Concomitant]
  7. ALPRAZOLAM [Concomitant]

REACTIONS (3)
  - MUSCLE SPASMS [None]
  - NAUSEA [None]
  - VOMITING [None]
